FAERS Safety Report 9547276 (Version 1)
Quarter: 2013Q2

REPORT INFORMATION
  Report Type: Spontaneous
  Country: US (occurrence: None)
  Receive Date: 20130606
  Receipt Date: 20130606
  Transmission Date: 20140414
  Serious: No
  Sender: FDA-Public Use
  Company Number: 2013PROUSA02592

PATIENT
  Age: 63 Year
  Sex: Male
  Weight: 149.7 kg

DRUGS (8)
  1. PROVENGE (SIPULEUCEL-T) SUSPENSION, 250ML [Suspect]
     Indication: PROSTATE CANCER METASTATIC
     Route: 042
     Dates: start: 20130131, end: 20130131
  2. ALLOPURINOL(ALLOPURINOL) [Concomitant]
  3. DILTIAZEM(DILITIAZEM HYDROCHLORIDE) [Concomitant]
  4. FUROSEMIDE(FUROSEMIDE) [Concomitant]
  5. ATORVASTATIN(ATORVASTATIN CALCIUM) [Concomitant]
  6. LISINOPRIL(LISINOPRIL) [Concomitant]
  7. BUPROPION(BUPROPION) [Concomitant]
  8. OXYCODONE(OXYCODONE) [Concomitant]

REACTIONS (3)
  - Chills [None]
  - Hypertension [None]
  - Dyspnoea [None]
